FAERS Safety Report 24331746 (Version 5)
Quarter: 2025Q3

REPORT INFORMATION
  Report Type: Spontaneous
  Country: US (occurrence: US)
  Receive Date: 20240918
  Receipt Date: 20250810
  Transmission Date: 20251020
  Serious: No
  Sender: ALEXION PHARMACEUTICALS
  Company Number: 2024A211624

PATIENT
  Sex: Female

DRUGS (1)
  1. BREZTRI [Suspect]
     Active Substance: BUDESONIDE\FORMOTEROL\GLYCOPYRROLATE
     Indication: Product used for unknown indication

REACTIONS (6)
  - Eye disorder [Unknown]
  - Product use issue [Unknown]
  - Taste disorder [Unknown]
  - Device malfunction [Unknown]
  - Device use issue [Unknown]
  - Wrong technique in device usage process [Unknown]
